FAERS Safety Report 19895589 (Version 1)
Quarter: 2021Q3

REPORT INFORMATION
  Report Type: Spontaneous
  Country: US (occurrence: US)
  Receive Date: 20210929
  Receipt Date: 20210929
  Transmission Date: 20211014
  Serious: Yes (Life-Threatening, Hospitalization)
  Sender: FDA-Public Use
  Company Number: None

PATIENT
  Age: 67 Year
  Sex: Female
  Weight: 65 kg

DRUGS (1)
  1. BARICITINIB. [Suspect]
     Active Substance: BARICITINIB
     Indication: COVID-19
     Route: 048
     Dates: start: 20210919, end: 20210927

REACTIONS (7)
  - Peripheral coldness [None]
  - Fibrin D dimer increased [None]
  - Peripheral artery occlusion [None]
  - Oedema peripheral [None]
  - Poor peripheral circulation [None]
  - Pallor [None]
  - Pulse absent [None]

NARRATIVE: CASE EVENT DATE: 20210926
